FAERS Safety Report 15714071 (Version 4)
Quarter: 2020Q1

REPORT INFORMATION
  Report Type: Report from Study
  Country: JP (occurrence: JP)
  Receive Date: 20181212
  Receipt Date: 20200220
  Transmission Date: 20200409
  Serious: Yes (Other)
  Sender: FDA-Public Use
  Company Number: JP-JNJFOC-20181208874

PATIENT
  Age: 25 Year
  Sex: Female
  Weight: 48.4 kg

DRUGS (37)
  1. SIMPONI [Suspect]
     Active Substance: GOLIMUMAB
     Route: 058
     Dates: start: 20180222, end: 20180222
  2. SIMPONI [Suspect]
     Active Substance: GOLIMUMAB
     Route: 058
     Dates: start: 20180322, end: 20180322
  3. SIMPONI [Suspect]
     Active Substance: GOLIMUMAB
     Route: 058
     Dates: start: 20180712, end: 20180712
  4. SIMPONI [Suspect]
     Active Substance: GOLIMUMAB
     Route: 058
     Dates: start: 20180906, end: 20180906
  5. SIMPONI [Suspect]
     Active Substance: GOLIMUMAB
     Route: 058
     Dates: start: 20190115, end: 20190115
  6. SIMPONI [Suspect]
     Active Substance: GOLIMUMAB
     Route: 058
     Dates: start: 20190205, end: 20190205
  7. SIMPONI [Suspect]
     Active Substance: GOLIMUMAB
     Route: 058
     Dates: start: 20190319, end: 20190319
  8. PREDONINE [Concomitant]
     Active Substance: PREDNISOLONE
     Indication: COLITIS ULCERATIVE
     Route: 048
     Dates: start: 20171228, end: 20180329
  9. PREDONINE [Concomitant]
     Active Substance: PREDNISOLONE
     Route: 048
     Dates: start: 20181226, end: 20190108
  10. SIMPONI [Suspect]
     Active Substance: GOLIMUMAB
     Route: 058
     Dates: start: 20181113, end: 20181113
  11. SIMPONI [Suspect]
     Active Substance: GOLIMUMAB
     Route: 058
     Dates: start: 20181204, end: 20181204
  12. SIMPONI [Suspect]
     Active Substance: GOLIMUMAB
     Route: 058
     Dates: start: 20190430, end: 20190430
  13. BUDESONIDE. [Concomitant]
     Active Substance: BUDESONIDE
     Indication: COLITIS ULCERATIVE
     Route: 054
     Dates: start: 20180906, end: 20181003
  14. SIMPONI [Suspect]
     Active Substance: GOLIMUMAB
     Route: 058
     Dates: start: 20190409, end: 20190409
  15. PENTASA [Concomitant]
     Active Substance: MESALAMINE
     Indication: COLITIS ULCERATIVE
     Route: 048
     Dates: start: 20171123, end: 20181022
  16. PREDONINE [Concomitant]
     Active Substance: PREDNISOLONE
     Route: 048
     Dates: start: 20181113, end: 20181125
  17. SIMPONI [Suspect]
     Active Substance: GOLIMUMAB
     Route: 058
     Dates: start: 20180419, end: 20180419
  18. LIALDA [Concomitant]
     Active Substance: MESALAMINE
     Route: 048
     Dates: start: 20181023
  19. PREDONINE [Concomitant]
     Active Substance: PREDNISOLONE
     Route: 048
     Dates: start: 20181126, end: 20181203
  20. SALAZOPYRIN [Concomitant]
     Active Substance: SULFASALAZINE
     Indication: COLITIS ULCERATIVE
     Route: 048
     Dates: start: 20180329
  21. SIMPONI [Suspect]
     Active Substance: GOLIMUMAB
     Indication: COLITIS ULCERATIVE
     Route: 058
     Dates: start: 20180206, end: 20180206
  22. SIMPONI [Suspect]
     Active Substance: GOLIMUMAB
     Route: 058
     Dates: start: 20180614, end: 20180614
  23. SIMPONI [Suspect]
     Active Substance: GOLIMUMAB
     Route: 058
     Dates: start: 20181225, end: 20181225
  24. SIMPONI [Suspect]
     Active Substance: GOLIMUMAB
     Route: 058
     Dates: start: 20190226, end: 20190226
  25. PREDONINE [Concomitant]
     Active Substance: PREDNISOLONE
     Route: 048
     Dates: start: 20181204, end: 20181211
  26. SIMPONI [Suspect]
     Active Substance: GOLIMUMAB
     Route: 058
     Dates: start: 20190702, end: 20190702
  27. PREDONINE [Concomitant]
     Active Substance: PREDNISOLONE
     Route: 048
     Dates: start: 20181023, end: 20181112
  28. PREDONINE [Concomitant]
     Active Substance: PREDNISOLONE
     Route: 048
     Dates: start: 20190109, end: 20190115
  29. SIMPONI [Suspect]
     Active Substance: GOLIMUMAB
     Route: 058
     Dates: start: 20180517, end: 20180517
  30. SIMPONI [Suspect]
     Active Substance: GOLIMUMAB
     Route: 058
     Dates: start: 20180809, end: 20180809
  31. SIMPONI [Suspect]
     Active Substance: GOLIMUMAB
     Route: 058
     Dates: start: 20181002, end: 20181002
  32. SIMPONI [Suspect]
     Active Substance: GOLIMUMAB
     Route: 058
     Dates: start: 20190521, end: 20190521
  33. LIALDA [Concomitant]
     Active Substance: MESALAMINE
     Indication: COLITIS ULCERATIVE
     Route: 048
     Dates: start: 20171109, end: 20171122
  34. PREDONINE [Concomitant]
     Active Substance: PREDNISOLONE
     Route: 048
     Dates: start: 20181009, end: 20181015
  35. SIMPONI [Suspect]
     Active Substance: GOLIMUMAB
     Route: 058
     Dates: start: 20190611, end: 20190611
  36. PREDONINE [Concomitant]
     Active Substance: PREDNISOLONE
     Route: 048
     Dates: start: 20181016, end: 20181022
  37. PREDONINE [Concomitant]
     Active Substance: PREDNISOLONE
     Route: 048
     Dates: start: 20181212, end: 20181225

REACTIONS (1)
  - Pyrexia [Recovered/Resolved]

NARRATIVE: CASE EVENT DATE: 20181003
